FAERS Safety Report 24332014 (Version 2)
Quarter: 2024Q3

REPORT INFORMATION
  Report Type: Spontaneous
  Country: US (occurrence: US)
  Receive Date: 20240918
  Receipt Date: 20240930
  Transmission Date: 20241016
  Serious: No
  Sender: IPSEN
  Company Number: US-IPSEN Group, Research and Development-2024-18198

PATIENT
  Age: 20 Year
  Sex: Female
  Weight: 65.31 kg

DRUGS (6)
  1. TAZVERIK [Suspect]
     Active Substance: TAZEMETOSTAT HYDROBROMIDE
     Indication: Soft tissue sarcoma
     Route: 048
     Dates: start: 20240116
  2. TYLENOL [Concomitant]
     Active Substance: ACETAMINOPHEN
  3. OLANZAPINE [Concomitant]
     Active Substance: OLANZAPINE
  4. MIRENA [Concomitant]
     Active Substance: LEVONORGESTREL
  5. BACTRIM DS [Concomitant]
     Active Substance: SULFAMETHOXAZOLE\TRIMETHOPRIM
  6. VALACYCLOVIR [Concomitant]
     Active Substance: VALACYCLOVIR HYDROCHLORIDE

REACTIONS (1)
  - Oral herpes [Recovering/Resolving]
